FAERS Safety Report 24374258 (Version 3)
Quarter: 2024Q4

REPORT INFORMATION
  Report Type: Spontaneous
  Country: US (occurrence: US)
  Receive Date: 20240927
  Receipt Date: 20241029
  Transmission Date: 20250115
  Serious: No
  Sender: MERCK
  Company Number: US-009507513-2409USA007731

PATIENT
  Sex: Female

DRUGS (4)
  1. WINREVAIR [Suspect]
     Active Substance: SOTATERCEPT-CSRK
     Indication: Product used for unknown indication
     Dosage: UNK
     Dates: start: 2024
  2. TYVASO [Suspect]
     Active Substance: TREPROSTINIL
     Indication: Pulmonary arterial hypertension
     Dosage: 90 UG (15 BREATHS), FOUR TIMES A DAY (QID)
     Dates: start: 202404
  3. TADALAFIL [Concomitant]
     Active Substance: TADALAFIL
     Dosage: UNK
  4. AMBRISENTAN [Concomitant]
     Active Substance: AMBRISENTAN
     Dosage: UNK

REACTIONS (2)
  - Gingival bleeding [Unknown]
  - Epistaxis [Unknown]

NARRATIVE: CASE EVENT DATE: 20240101
